FAERS Safety Report 15936068 (Version 2)
Quarter: 2019Q1

REPORT INFORMATION
  Report Type: Spontaneous
  Country: FR (occurrence: FR)
  Receive Date: 20190208
  Receipt Date: 20190221
  Transmission Date: 20190417
  Serious: Yes (Hospitalization, Other)
  Sender: FDA-Public Use
  Company Number: FR-AUROBINDO-AUR-APL-2019-006390

PATIENT

DRUGS (14)
  1. CITALOPRAM [Concomitant]
     Active Substance: CITALOPRAM HYDROBROMIDE
     Indication: PRODUCT USED FOR UNKNOWN INDICATION
     Dosage: 20 MG
     Route: 065
  2. FERROSTRANE [Concomitant]
     Active Substance: SODIUM FEREDETATE
     Indication: PRODUCT USED FOR UNKNOWN INDICATION
     Dosage: 15 MILLILITER, TWO TIMES A DAY (15 ML, BID)
     Route: 065
  3. MEROPENEM. [Concomitant]
     Active Substance: MEROPENEM
     Indication: OSTEITIS
     Dosage: 2 GRAM, 3 TIMES A DAY (2 G, TID)
     Route: 042
     Dates: start: 20181127, end: 20190105
  4. FOSFOCINE [Concomitant]
     Active Substance: FOSFOMYCIN
     Indication: MENINGITIS
     Dosage: 4 GRAM, FOUR TIMES/DAY (4 G, QID)
     Route: 042
     Dates: start: 20181229, end: 20190101
  5. FOSFOCINE [Concomitant]
     Active Substance: FOSFOMYCIN
     Indication: OSTEITIS
     Dosage: 4 GRAM, TWO TIMES A DAY (4 G, BID)
     Route: 042
     Dates: start: 20190102, end: 20190107
  6. MEROPENEM. [Concomitant]
     Active Substance: MEROPENEM
     Indication: MENINGITIS
  7. AZTREONAM. [Concomitant]
     Active Substance: AZTREONAM
     Indication: PRODUCT USED FOR UNKNOWN INDICATION
     Dosage: 2 GRAM, 3 TIMES A DAY (2 G, TID)
     Route: 065
  8. LANSOPRAZOLE. [Concomitant]
     Active Substance: LANSOPRAZOLE
     Indication: PRODUCT USED FOR UNKNOWN INDICATION
     Dosage: 15 MILLIGRAM, ONCE A DAY (15 MG, QD)
     Route: 065
     Dates: start: 20190101
  9. TARDYFERON [Suspect]
     Active Substance: FERROUS SULFATE
     Indication: IRON DEFICIENCY
     Dosage: 80 MILLIGRAM, TWO TIMES A DAY (80 MG, BID)
     Route: 048
     Dates: start: 20181121, end: 20190102
  10. PANTOPRAZOLE GASTRO-RESISTANT TABLET [Suspect]
     Active Substance: PANTOPRAZOLE SODIUM
     Indication: STRESS ULCER
     Dosage: 20 MILLIGRAM, ONCE A DAY (20 MG, QD)
     Route: 048
     Dates: start: 20181121, end: 20190101
  11. VANCOMYCIN [Suspect]
     Active Substance: VANCOMYCIN
     Indication: MENINGITIS
  12. VANCOMYCIN [Suspect]
     Active Substance: VANCOMYCIN
     Indication: OSTEITIS
     Dosage: UNK
     Route: 042
     Dates: start: 20181127, end: 20181228
  13. FOSFOCINE [Concomitant]
     Active Substance: FOSFOMYCIN
     Dosage: 4 GRAM, FOUR TIMES/DAY (4 G, QID)
     Route: 042
     Dates: start: 20190108, end: 20190108
  14. FUMAFER [Concomitant]
     Active Substance: FERROUS FUMARATE
     Indication: PRODUCT USED FOR UNKNOWN INDICATION
     Dosage: UNK
     Route: 065
     Dates: start: 20190103

REACTIONS (10)
  - Generalised erythema [Not Recovered/Not Resolved]
  - Blood albumin decreased [Unknown]
  - Skin exfoliation [Not Recovered/Not Resolved]
  - Immunoglobulins decreased [Unknown]
  - Red man syndrome [Unknown]
  - Oedema peripheral [Not Recovered/Not Resolved]
  - Rash generalised [Not Recovered/Not Resolved]
  - Rash [Recovered/Resolved]
  - Pruritus [Not Recovered/Not Resolved]
  - Agranulocytosis [Recovering/Resolving]

NARRATIVE: CASE EVENT DATE: 20181122
